FAERS Safety Report 16068374 (Version 1)
Quarter: 2019Q1

REPORT INFORMATION
  Report Type: Spontaneous
  Country: HR (occurrence: HR)
  Receive Date: 20190313
  Receipt Date: 20190313
  Transmission Date: 20190418
  Serious: Yes (Other)
  Sender: FDA-Public Use
  Company Number: HR-TEVA-2019-HR-1023103

PATIENT
  Age: 70 Year
  Sex: Female
  Weight: 65 kg

DRUGS (4)
  1. TYREZ [Suspect]
     Active Substance: BISOPROLOL FUMARATE
     Indication: ARRHYTHMIA
     Dosage: 2.5 MILLIGRAM DAILY;  1X1
     Route: 048
     Dates: start: 20170519
  2. RISBON [Suspect]
     Active Substance: RISEDRONIC ACID
     Indication: OSTEOPOROSIS
     Dosage: 75 MILLIGRAM DAILY; 75 MG; 1 X 75 MG, TWO CONSECUTIVE DAYS PER MONTH
     Route: 048
     Dates: start: 20180915, end: 20180916
  3. PLIVIT D3 [Suspect]
     Active Substance: CHOLECALCIFEROL
     Indication: OSTEOPOROSIS
     Dosage: 4 GTT DAILY; 4000 IU; 1 X 4 KAPI
     Route: 048
     Dates: start: 20180306
  4. PRILEN [Suspect]
     Active Substance: RAMIPRIL
     Indication: HYPERTENSION
     Dosage: 2.5 MILLIGRAM DAILY;  1 X 1
     Route: 048
     Dates: start: 20170601

REACTIONS (2)
  - Constipation [Recovered/Resolved with Sequelae]
  - Back pain [Recovered/Resolved with Sequelae]

NARRATIVE: CASE EVENT DATE: 20180920
